FAERS Safety Report 4470242-8 (Version None)
Quarter: 2004Q4

REPORT INFORMATION
  Report Type: 
  Country: None (occurrence: None)
  Receive Date: 20041008
  Receipt Date: 20040824
  Transmission Date: 20050328
  Serious: Yes (Hospitalization)
  Sender: FDA-Public Use
  Company Number: GB-MERCK-0408GBR00250

PATIENT
  Age: 69 Year
  Sex: Male
  Weight: 76 kg

DRUGS (3)
  1. ALLOPURINOL [Concomitant]
     Indication: GOUT
     Route: 065
  2. LISINOPRIL [Concomitant]
     Indication: HYPERTENSION
     Route: 065
  3. ZOCOR [Suspect]
     Indication: HYPERCHOLESTEROLAEMIA
     Route: 048
     Dates: start: 19961201, end: 20000501

REACTIONS (8)
  - ASTHENIA [None]
  - CIRCULATORY COLLAPSE [None]
  - CORONARY ARTERY STENOSIS [None]
  - DIZZINESS [None]
  - ELECTROCARDIOGRAM ST SEGMENT DEPRESSION [None]
  - FATIGUE [None]
  - LOSS OF CONSCIOUSNESS [None]
  - MYOSITIS [None]
